FAERS Safety Report 9402375 (Version 1)
Quarter: 2013Q3

REPORT INFORMATION
  Report Type: Spontaneous
  Country: US (occurrence: None)
  Receive Date: 20130712
  Receipt Date: 20130712
  Transmission Date: 20140515
  Serious: Yes (Hospitalization)
  Sender: FDA-Public Use
  Company Number: None

PATIENT
  Age: 63 Year
  Sex: Male
  Weight: 97 kg

DRUGS (15)
  1. VANCOMYCIN 1 GRAM PFIZER [Suspect]
     Indication: ABDOMINAL INFECTION
     Route: 042
     Dates: start: 20130315, end: 20130328
  2. PIPERACILLIN/TAZOBACTAM 3.375 GRAMS PFIZER [Suspect]
     Indication: ABDOMINAL INFECTION
     Route: 042
     Dates: start: 20130315, end: 20130325
  3. ERTAPENEM [Concomitant]
  4. DIGOXIN [Concomitant]
  5. MAGNESIUM SULFATE [Concomitant]
  6. POTASSIUM CHLORIDE [Concomitant]
  7. ZINC SULFATE [Concomitant]
  8. ADVAIR DISKUS [Concomitant]
  9. FUROSEMIDE [Concomitant]
  10. INSULIN GLARGINE [Concomitant]
  11. MORPHINE IV [Concomitant]
  12. CITALOPRAM [Concomitant]
  13. CHOLECALCIFEROL [Concomitant]
  14. CARVEDILOL [Concomitant]
  15. ASCORBIC ACID [Concomitant]

REACTIONS (1)
  - Blood creatinine increased [None]
